FAERS Safety Report 4686191-6 (Version None)
Quarter: 2005Q2

REPORT INFORMATION
  Report Type: 
  Country: None (occurrence: None)
  Receive Date: 20050609
  Receipt Date: 20050527
  Transmission Date: 20051028
  Serious: Yes (Life-Threatening)
  Sender: FDA-Public Use
  Company Number: NL-BOEHRINGER INGELHEIM PHARMACEUTICALS, INC.-2005-DE-01988GD

PATIENT
  Age: 51 Year
  Sex: Male

DRUGS (8)
  1. DIPYRIDAMOLE [Suspect]
     Indication: CHEST PAIN
  2. ACETYLSALICYLIC ACID [Suspect]
     Indication: CHEST PAIN
  3. NADROPARIN [Suspect]
     Indication: CHEST PAIN
     Dosage: 5700 INTERNATIONAL EQUIVALENTS
  4. NADROPARIN [Suspect]
     Indication: THROMBOSIS PROPHYLAXIS
  5. NITROGLYCERIN [Concomitant]
     Indication: CHEST PAIN
  6. TACROLIMUS [Concomitant]
     Indication: IMMUNOSUPPRESSANT DRUG THERAPY
  7. MYCOPHENOLATE MOFETIL [Concomitant]
     Indication: IMMUNOSUPPRESSANT DRUG THERAPY
  8. PREDNISOLONE [Concomitant]
     Indication: IMMUNOSUPPRESSANT DRUG THERAPY

REACTIONS (6)
  - HAEMATOMA [None]
  - HAEMOGLOBIN DECREASED [None]
  - OLIGURIA [None]
  - PLATELET DISORDER [None]
  - POSTOPERATIVE WOUND COMPLICATION [None]
  - WOUND SECRETION [None]
